FAERS Safety Report 11749880 (Version 1)
Quarter: 2015Q4

REPORT INFORMATION
  Report Type: Spontaneous
  Country: US (occurrence: None)
  Receive Date: 20151116
  Receipt Date: 20151116
  Transmission Date: 20160304
  Serious: Yes (Life-Threatening)
  Sender: FDA-Public Use
  Company Number: None

PATIENT
  Age: 66 Year
  Sex: Male
  Weight: 100.6 kg

DRUGS (4)
  1. MIDAZOLAM [Suspect]
     Active Substance: MIDAZOLAM\MIDAZOLAM HYDROCHLORIDE
     Indication: SURGERY
     Route: 042
     Dates: start: 20150917, end: 20150917
  2. MEPERIDINE [Suspect]
     Active Substance: MEPERIDINE
     Indication: SURGERY
     Route: 042
     Dates: start: 20150917, end: 20150917
  3. MIDAZOLAM [Suspect]
     Active Substance: MIDAZOLAM\MIDAZOLAM HYDROCHLORIDE
     Indication: COLONOSCOPY
     Route: 042
     Dates: start: 20150917, end: 20150917
  4. MEPERIDINE [Suspect]
     Active Substance: MEPERIDINE
     Indication: COLONOSCOPY
     Route: 042
     Dates: start: 20150917, end: 20150917

REACTIONS (4)
  - Sedation [None]
  - Seizure [None]
  - Respiratory depression [None]
  - Procedural complication [None]

NARRATIVE: CASE EVENT DATE: 20150917
